FAERS Safety Report 9685417 (Version 1)
Quarter: 2013Q4

REPORT INFORMATION
  Report Type: Spontaneous
  Country: JP (occurrence: JP)
  Receive Date: 20131113
  Receipt Date: 20131113
  Transmission Date: 20140711
  Serious: Yes (Hospitalization)
  Sender: FDA-Public Use
  Company Number: JP-JNJFOC-20131104852

PATIENT
  Sex: Male

DRUGS (2)
  1. SIMPONI [Suspect]
     Indication: RHEUMATOID ARTHRITIS
     Route: 058
  2. PREDONINE [Concomitant]
     Indication: RHEUMATOID ARTHRITIS
     Dosage: 15-20 MG
     Route: 048

REACTIONS (3)
  - Lung neoplasm malignant [Unknown]
  - Musculoskeletal stiffness [Unknown]
  - Joint swelling [Unknown]
